FAERS Safety Report 6717035-6 (Version None)
Quarter: 2010Q2

REPORT INFORMATION
  Report Type: 
  Country: None (occurrence: None)
  Receive Date: 20100510
  Receipt Date: 20100503
  Transmission Date: 20101027
  Serious: Yes (Other)
  Sender: FDA-Public Use
  Company Number: US-JNJFOC-20100501023

PATIENT
  Sex: Female
  Weight: 72.58 kg

DRUGS (4)
  1. DURAGESIC-100 [Suspect]
     Indication: CANCER PAIN
     Route: 062
  2. DURAGESIC-100 [Suspect]
     Route: 062
  3. HYDROMORPHONE HCL [Concomitant]
     Indication: PAIN
     Route: 048
  4. ZOFRAN [Concomitant]
     Indication: NAUSEA
     Route: 048

REACTIONS (3)
  - ABNORMAL LOSS OF WEIGHT [None]
  - INADEQUATE ANALGESIA [None]
  - PANCREATIC CARCINOMA METASTATIC [None]
